FAERS Safety Report 12718882 (Version 1)
Quarter: 2016Q3

REPORT INFORMATION
  Report Type: Other
  Country: US (occurrence: US)
  Receive Date: 20160906
  Receipt Date: 20160906
  Transmission Date: 20161109
  Serious: No
  Sender: FDA-Public Use
  Company Number: US-COL_20248_2015

PATIENT
  Age: 44 Year
  Sex: Male

DRUGS (2)
  1. COLGATE TOTAL ADVANCED WHITENING [Suspect]
     Active Substance: SODIUM FLUORIDE\TRICLOSAN
     Indication: PRODUCT USED FOR UNKNOWN INDICATION
     Dosage: APPLIED A LITTLE BIT MORE THAN A PEA SIZE AMOUNT TO THE HEAD OF THE TOOTHBRUSH/BID/
     Route: 048
     Dates: start: 201506, end: 201506
  2. COLGATE TOTAL ADVANCED WHITENING [Suspect]
     Active Substance: SODIUM FLUORIDE\TRICLOSAN
     Dosage: APPLIED A LITTLE BIT MORE THAN A PEA SIZE AMOUNT TO THE HEAD OF THE TOOTHBRUSH/BID/
     Route: 048
     Dates: start: 201506, end: 201506

REACTIONS (1)
  - Stomatitis [Recovered/Resolved]

NARRATIVE: CASE EVENT DATE: 201506
